FAERS Safety Report 19197211 (Version 1)
Quarter: 2021Q2

REPORT INFORMATION
  Report Type: Spontaneous
  Country: US (occurrence: US)
  Receive Date: 20210429
  Receipt Date: 20210429
  Transmission Date: 20210717
  Serious: Yes (Hospitalization, Other)
  Sender: FDA-Public Use
  Company Number: US-VIIV HEALTHCARE LIMITED-US2021GSK091770

PATIENT
  Age: 40 Year
  Sex: Male

DRUGS (1)
  1. TRIUMEQ [Suspect]
     Active Substance: ABACAVIR SULFATE\DOLUTEGRAVIR SODIUM\LAMIVUDINE
     Indication: HIV INFECTION
     Dosage: UNK

REACTIONS (19)
  - Arthralgia [Recovering/Resolving]
  - Skin exfoliation [Recovering/Resolving]
  - Glomerulonephropathy [Recovering/Resolving]
  - Virologic failure [Unknown]
  - Renal tubular atrophy [Recovering/Resolving]
  - Decreased appetite [Recovering/Resolving]
  - Visual impairment [Recovering/Resolving]
  - Chills [Recovering/Resolving]
  - Neurosyphilis [Recovering/Resolving]
  - Fatigue [Recovering/Resolving]
  - Weight decreased [Recovering/Resolving]
  - Rash [Recovered/Resolved]
  - Acute kidney injury [Recovering/Resolving]
  - Treatment noncompliance [Unknown]
  - Kidney enlargement [Recovering/Resolving]
  - Rash macular [Recovered/Resolved]
  - Glomerulonephritis rapidly progressive [Recovering/Resolving]
  - Secondary syphilis [Unknown]
  - Kidney fibrosis [Recovering/Resolving]
